FAERS Safety Report 5380546-2 (Version None)
Quarter: 2007Q3

REPORT INFORMATION
  Report Type: 
  Country: None (occurrence: None)
  Receive Date: 20070706
  Receipt Date: 20070618
  Transmission Date: 20080115
  Serious: Yes (Other)
  Sender: FDA-Public Use
  Company Number: CN-BAYER-200713629GDS

PATIENT
  Age: 37 Year
  Sex: Male

DRUGS (1)
  1. NEXAVAR [Suspect]
     Indication: RENAL CELL CARCINOMA STAGE UNSPECIFIED
     Dosage: UNIT DOSE: 400 MG
     Route: 048
     Dates: start: 20070606

REACTIONS (5)
  - ARTHRALGIA [None]
  - BLISTER [None]
  - BLOOD URIC ACID INCREASED [None]
  - MYALGIA [None]
  - TRANSAMINASES INCREASED [None]
